FAERS Safety Report 5108793-5 (Version None)
Quarter: 2006Q3

REPORT INFORMATION
  Report Type: 
  Country: None (occurrence: None)
  Receive Date: 20060920
  Receipt Date: 20060911
  Transmission Date: 20061208
  Serious: Yes (Hospitalization)
  Sender: FDA-Public Use
  Company Number: 2006UW18095

PATIENT
  Age: 31 Year
  Sex: Female

DRUGS (2)
  1. NEXIUM [Suspect]
     Route: 048
     Dates: start: 20060816
  2. NEURONTIN [Concomitant]
     Route: 048
     Dates: start: 20060813

REACTIONS (1)
  - APLASTIC ANAEMIA [None]
